FAERS Safety Report 7906953-9 (Version None)
Quarter: 2011Q4

REPORT INFORMATION
  Report Type: 
  Country: None (occurrence: None)
  Receive Date: 20111110
  Receipt Date: 20110923
  Transmission Date: 20120403
  Serious: No
  Sender: FDA-Public Use
  Company Number: US-COVIDIEN/TYCO HEALTHCARE/MALLINCKRODT-T201102011

PATIENT
  Sex: Female

DRUGS (9)
  1. KLOR-CON [Concomitant]
     Dosage: 1 TAB, QD
     Route: 048
  2. SIMVASTATIN [Concomitant]
     Dosage: 20 MG, QHS
     Route: 048
  3. FUROSEMIDE [Concomitant]
     Dosage: 1 1/2 TAB QD
     Route: 048
  4. COUMADIN [Concomitant]
     Dosage: 5 MG, MON AND FRI
     Route: 048
  5. LORAZEPAM [Concomitant]
     Dosage: 2 MG, QHS
     Route: 048
  6. PENNSAID [Suspect]
     Indication: ARTHRITIS
     Dosage: 10 GTT, BID
     Route: 061
     Dates: start: 20110912, end: 20110914
  7. COUMADIN [Concomitant]
     Dosage: 2.5 MG, TUES, THURS, SAT, SUN
     Route: 048
  8. ALLOPURINOL [Concomitant]
     Dosage: 1/2 TAB QD
     Route: 048
  9. ATENOLOL [Concomitant]
     Dosage: 100 MG, QHS
     Route: 048

REACTIONS (2)
  - BLOOD PRESSURE INCREASED [None]
  - VISION BLURRED [None]
